FAERS Safety Report 4465058-2 (Version None)
Quarter: 2004Q3

REPORT INFORMATION
  Report Type: 
  Country: None (occurrence: None)
  Receive Date: 20040929
  Receipt Date: 20040910
  Transmission Date: 20050211
  Serious: Yes (Hospitalization)
  Sender: FDA-Public Use
  Company Number: US_0409105504

PATIENT
  Age: 80 Year
  Sex: Female

DRUGS (3)
  1. CYMBALTA [Suspect]
     Indication: DEPRESSION
  2. ARICEPT [Concomitant]
  3. REMERON [Concomitant]

REACTIONS (3)
  - DIZZINESS [None]
  - SYNCOPE [None]
  - TREATMENT NONCOMPLIANCE [None]
